FAERS Safety Report 12168459 (Version 41)
Quarter: 2019Q3

REPORT INFORMATION
  Report Type: Report from Study
  Country: CA (occurrence: CA)
  Receive Date: 20160310
  Receipt Date: 20190929
  Transmission Date: 20191004
  Serious: Yes (Hospitalization, Other)
  Sender: FDA-Public Use
  Company Number: PHHY2016CA018141

PATIENT
  Age: 79 Year
  Sex: Female

DRUGS (10)
  1. WARFARIN [Concomitant]
     Active Substance: WARFARIN
     Indication: PRODUCT USED FOR UNKNOWN INDICATION
     Route: 065
  2. CHLORTHALIDONE. [Concomitant]
     Active Substance: CHLORTHALIDONE
     Indication: PRODUCT USED FOR UNKNOWN INDICATION
     Dosage: UNK
     Route: 065
  3. SANDOSTATIN LAR DEPOT [Suspect]
     Active Substance: OCTREOTIDE ACETATE
     Indication: CARCINOID TUMOUR
     Dosage: 20 MG, QMO (EVERY 4 WEEKS)
     Route: 030
     Dates: start: 20160108, end: 20170114
  4. BISOPROLOL [Suspect]
     Active Substance: BISOPROLOL
     Indication: PRODUCT USED FOR UNKNOWN INDICATION
     Dosage: UNK
     Route: 065
  5. PANTOPRAZOLE [Suspect]
     Active Substance: PANTOPRAZOLE
     Indication: PRODUCT USED FOR UNKNOWN INDICATION
     Dosage: UNK
     Route: 065
  6. METFORMIN [Suspect]
     Active Substance: METFORMIN HYDROCHLORIDE
     Indication: PRODUCT USED FOR UNKNOWN INDICATION
     Dosage: UNK
     Route: 065
  7. ALLOPURINOL. [Concomitant]
     Active Substance: ALLOPURINOL
     Indication: PRODUCT USED FOR UNKNOWN INDICATION
     Route: 065
  8. SANDOSTATIN [Suspect]
     Active Substance: OCTREOTIDE ACETATE
     Indication: CARCINOID TUMOUR
     Dosage: ONCE/SINGLE
     Route: 058
     Dates: start: 20160106, end: 20160106
  9. SANDOSTATIN LAR DEPOT [Suspect]
     Active Substance: OCTREOTIDE ACETATE
     Dosage: 30 MG, QMO (EVERY 4 WEEKS)
     Route: 030
     Dates: start: 20170214
  10. SANDOSTATIN LAR DEPOT [Suspect]
     Active Substance: OCTREOTIDE ACETATE
     Dosage: UNK
     Route: 030
     Dates: start: 20190325

REACTIONS (50)
  - Peripheral swelling [Unknown]
  - Pain in extremity [Unknown]
  - Blood glucose fluctuation [Recovering/Resolving]
  - Hip fracture [Recovering/Resolving]
  - Nausea [Unknown]
  - Vomiting [Unknown]
  - Urinary tract infection [Unknown]
  - Discomfort [Not Recovered/Not Resolved]
  - Contusion [Recovered/Resolved]
  - Rash [Unknown]
  - Rib fracture [Unknown]
  - Abdominal pain [Unknown]
  - Rheumatoid arthritis [Unknown]
  - Speech disorder [Unknown]
  - Seizure [Unknown]
  - Atrial fibrillation [Unknown]
  - Neck mass [Unknown]
  - Arthritis [Unknown]
  - Memory impairment [Unknown]
  - Chest pain [Unknown]
  - Heart rate irregular [Unknown]
  - Choking [Recovering/Resolving]
  - Cardiac failure congestive [Unknown]
  - Dyspnoea [Unknown]
  - Nervousness [Unknown]
  - Mobility decreased [Unknown]
  - Blood glucose increased [Recovering/Resolving]
  - Joint swelling [Unknown]
  - Fall [Unknown]
  - Wound [Unknown]
  - Asthenia [Unknown]
  - Blood glucose fluctuation [Recovered/Resolved]
  - Injection site erythema [Unknown]
  - Breast pain [Unknown]
  - Oedema peripheral [Recovering/Resolving]
  - Arthralgia [Unknown]
  - Neck pain [Unknown]
  - Musculoskeletal pain [Unknown]
  - Dyspnoea [Recovered/Resolved]
  - Blood pressure systolic increased [Unknown]
  - Blood pressure decreased [Unknown]
  - Back pain [Unknown]
  - Diarrhoea [Unknown]
  - Facial paralysis [Unknown]
  - Blood pressure increased [Recovered/Resolved]
  - Gait disturbance [Unknown]
  - Flatulence [Unknown]
  - Dizziness [Unknown]
  - Injection site pain [Unknown]
  - Injection site swelling [Unknown]

NARRATIVE: CASE EVENT DATE: 2016
